FAERS Safety Report 8064658-0 (Version None)
Quarter: 2012Q1

REPORT INFORMATION
  Report Type: 
  Country: None (occurrence: None)
  Receive Date: 20120123
  Receipt Date: 20111031
  Transmission Date: 20120608
  Serious: Yes (Death, Other)
  Sender: FDA-Public Use
  Company Number: JP-ROCHE-768018

PATIENT

DRUGS (5)
  1. DOXORUBICIN HCL [Suspect]
     Indication: B-CELL LYMPHOMA
     Route: 065
  2. VINCRISTINE [Suspect]
     Indication: B-CELL LYMPHOMA
     Route: 042
  3. PREDNISONE TAB [Suspect]
     Indication: B-CELL LYMPHOMA
     Route: 048
  4. MABTHERA [Suspect]
     Indication: B-CELL LYMPHOMA
     Route: 065
  5. CYCLOPHOSPHAMIDE [Suspect]
     Indication: B-CELL LYMPHOMA
     Route: 065

REACTIONS (32)
  - HYPERGLYCAEMIA [None]
  - HYPOKALAEMIA [None]
  - ARRHYTHMIA SUPRAVENTRICULAR [None]
  - ILEUS [None]
  - HEPATIC CIRRHOSIS [None]
  - PYREXIA [None]
  - STOMATITIS [None]
  - HAEMATURIA [None]
  - FEBRILE NEUTROPENIA [None]
  - DYSPNOEA [None]
  - NEUTROPENIA [None]
  - CONSTIPATION [None]
  - HYPONATRAEMIA [None]
  - MYELODYSPLASTIC SYNDROME [None]
  - HEPATITIS B [None]
  - ACUTE MYELOID LEUKAEMIA [None]
  - COLON CANCER [None]
  - PNEUMOCYSTIS JIROVECI PNEUMONIA [None]
  - THROMBOCYTOPENIA [None]
  - ALANINE AMINOTRANSFERASE ABNORMAL [None]
  - ASPARTATE AMINOTRANSFERASE ABNORMAL [None]
  - NAUSEA [None]
  - PHARYNGITIS [None]
  - ACUTE LYMPHOCYTIC LEUKAEMIA [None]
  - HYPOCALCAEMIA [None]
  - DECREASED APPETITE [None]
  - DIARRHOEA [None]
  - VOMITING [None]
  - NEUTROPENIC INFECTION [None]
  - NEUROPATHY PERIPHERAL [None]
  - INFECTION [None]
  - HAEMOGLOBIN DECREASED [None]
